FAERS Safety Report 9355548 (Version 1)
Quarter: 2013Q2

REPORT INFORMATION
  Report Type: Spontaneous
  Country: US (occurrence: US)
  Receive Date: 20130619
  Receipt Date: 20130619
  Transmission Date: 20140414
  Serious: Yes (Hospitalization, Other)
  Sender: FDA-Public Use
  Company Number: US-PFIZER INC-2013182568

PATIENT
  Age: 30 Year
  Sex: Female
  Weight: 117.91 kg

DRUGS (4)
  1. PRISTIQ [Suspect]
     Indication: DEPRESSION
     Dosage: 150 MG, 1X/DAY
     Dates: end: 201306
  2. VICTOZA [Concomitant]
     Indication: DIABETES MELLITUS
     Dosage: 0.6-1.2MG, AS NEEDED
  3. METFORMIN [Concomitant]
     Indication: DIABETES MELLITUS
     Dosage: 1000 MG, 2X/DAY
  4. LEVOTHYROXINE SODIUM [Concomitant]
     Indication: THYROID DISORDER
     Dosage: UNK, DAILY

REACTIONS (2)
  - Gastrointestinal disorder [Unknown]
  - Incorrect dose administered [Unknown]
